FAERS Safety Report 21111421 (Version 1)
Quarter: 2022Q3

REPORT INFORMATION
  Report Type: Report from Study
  Country: IT (occurrence: IT)
  Receive Date: 20220721
  Receipt Date: 20220721
  Transmission Date: 20221027
  Serious: Yes (Hospitalization)
  Sender: FDA-Public Use
  Company Number: None

PATIENT
  Age: 78 Year
  Sex: Female

DRUGS (18)
  1. SPIRONOLACTONE [Suspect]
     Active Substance: SPIRONOLACTONE
     Indication: Hypertension
  2. BROMAZEPAM [Suspect]
     Active Substance: BROMAZEPAM
     Indication: Insomnia
  3. CITALOPRAM [Suspect]
     Active Substance: CITALOPRAM HYDROBROMIDE
     Indication: Depression
  4. MELATONIN [Concomitant]
     Active Substance: MELATONIN
     Indication: Insomnia
  5. FOLIC ACID [Concomitant]
     Active Substance: FOLIC ACID
     Indication: Anaemia
  6. TENOFOVIR DISOPROXIL [Concomitant]
     Active Substance: TENOFOVIR DISOPROXIL
     Indication: Hepatitis B
  7. DOMPERIDONE [Concomitant]
     Active Substance: DOMPERIDONE
     Indication: Nausea
  8. CARBOMER [Concomitant]
     Active Substance: CARBOMER
     Indication: Dehydration
  9. ASPIRIN [Concomitant]
     Active Substance: ASPIRIN
     Indication: Prophylaxis
  10. LANSOPRAZOLE [Concomitant]
     Active Substance: LANSOPRAZOLE
     Indication: Prophylaxis
  11. MOVICOL [Concomitant]
     Active Substance: POLYETHYLENE GLYCOL 3350\POTASSIUM CHLORIDE\SODIUM BICARBONATE\SODIUM CHLORIDE
     Indication: Astringent therapy
  12. PREDNISONE [Concomitant]
     Active Substance: PREDNISONE
     Indication: Sarcoidosis
  13. LEVOTHYROXINE SODIUM [Concomitant]
     Active Substance: LEVOTHYROXINE SODIUM
     Indication: Hypothyroidism
  14. BISOPROLOL FUMARATE [Concomitant]
     Active Substance: BISOPROLOL FUMARATE
     Indication: Hypertension
  15. PREGABALIN [Concomitant]
     Active Substance: PREGABALIN
     Indication: Anxiety
  16. FENTANYL [Concomitant]
     Active Substance: FENTANYL
     Indication: Pain
  17. HYDROXYCHLOROQUINE SULFATE [Concomitant]
     Active Substance: HYDROXYCHLOROQUINE SULFATE
     Indication: Arthropathy
  18. FUROSEMIDE [Concomitant]
     Active Substance: FUROSEMIDE
     Indication: Hypertension

REACTIONS (2)
  - Fall [Unknown]
  - Craniocerebral injury [Recovered/Resolved]

NARRATIVE: CASE EVENT DATE: 20220301
